FAERS Safety Report 16882535 (Version 3)
Quarter: 2022Q2

REPORT INFORMATION
  Report Type: Report from Study
  Country: CA (occurrence: CA)
  Receive Date: 20191003
  Receipt Date: 20220616
  Transmission Date: 20220720
  Serious: Yes (Other)
  Sender: FDA-Public Use
  Company Number: CA-BAUSCH-BL-2019-055729

PATIENT
  Age: 60 Year
  Sex: Female
  Weight: 61 kg

DRUGS (24)
  1. WELLBUTRIN [Suspect]
     Active Substance: BUPROPION HYDROCHLORIDE
     Indication: Product used for unknown indication
     Dosage: TABLET (EXTENDED RELEASE)
     Route: 065
  2. WELLBUTRIN [Suspect]
     Active Substance: BUPROPION HYDROCHLORIDE
     Route: 065
  3. ALBUTEROL SULFATE [Suspect]
     Active Substance: ALBUTEROL SULFATE
     Indication: Asthma
     Route: 065
  4. ATIVAN [Suspect]
     Active Substance: LORAZEPAM
     Indication: Product used for unknown indication
     Route: 065
  5. BUPROPION HYDROBROMIDE [Suspect]
     Active Substance: BUPROPION HYDROBROMIDE
     Indication: Product used for unknown indication
     Route: 065
  6. BUPROPION HYDROBROMIDE [Suspect]
     Active Substance: BUPROPION HYDROBROMIDE
     Route: 065
  7. ALBUTEROL [Suspect]
     Active Substance: ALBUTEROL
     Indication: Asthma
     Route: 065
  8. ALVESCO [Suspect]
     Active Substance: CICLESONIDE
     Indication: Product used for unknown indication
     Dosage: AEROSOL, METERED?DOSE
     Route: 065
  9. BREO ELLIPTA [Suspect]
     Active Substance: FLUTICASONE FUROATE\VILANTEROL TRIFENATATE
     Indication: Product used for unknown indication
     Route: 065
  10. CALCIUM CARBONATE [Suspect]
     Active Substance: CALCIUM CARBONATE
     Indication: Product used for unknown indication
     Route: 065
  11. CEFUROXIME AXETIL [Suspect]
     Active Substance: CEFUROXIME AXETIL
     Indication: Product used for unknown indication
     Route: 065
  12. CITALOPRAM HYDROBROMIDE [Suspect]
     Active Substance: CITALOPRAM HYDROBROMIDE
     Indication: Product used for unknown indication
     Route: 065
  13. HIZENTRA [Suspect]
     Active Substance: HUMAN IMMUNOGLOBULIN G
     Indication: Product used for unknown indication
     Dosage: SINGLE USE VIALS
     Route: 058
  14. MOXIFLOXACIN HYDROCHLORIDE [Suspect]
     Active Substance: MOXIFLOXACIN HYDROCHLORIDE
     Indication: Product used for unknown indication
     Route: 065
  15. RABEPRAZOLE SODIUM [Suspect]
     Active Substance: RABEPRAZOLE SODIUM
     Indication: Product used for unknown indication
     Dosage: ENTERICCOATED
     Route: 065
  16. PREDNISONE [Suspect]
     Active Substance: PREDNISONE
     Indication: Product used for unknown indication
     Route: 065
  17. PREDNISONE [Suspect]
     Active Substance: PREDNISONE
     Route: 065
  18. UMECLIDINIUM BROMIDE\VILANTEROL TRIFENATATE [Suspect]
     Active Substance: UMECLIDINIUM BROMIDE\VILANTEROL TRIFENATATE
     Indication: Product used for unknown indication
     Route: 065
  19. VITAMIN D [Suspect]
     Active Substance: VITAMIN D NOS
     Indication: Product used for unknown indication
     Route: 065
  20. AVELOX [Suspect]
     Active Substance: MOXIFLOXACIN HYDROCHLORIDE
     Indication: Product used for unknown indication
     Route: 065
  21. CALCIUM CARBONATE\CALCIUM GLUCONATE\CALCIUM LACTATE [Suspect]
     Active Substance: CALCIUM CARBONATE\CALCIUM GLUCONATE\CALCIUM LACTATE
     Indication: Product used for unknown indication
     Route: 065
  22. ERGOCALCIFEROL [Suspect]
     Active Substance: ERGOCALCIFEROL
     Indication: Product used for unknown indication
     Route: 065
  23. ERGOCALCIFEROL [Suspect]
     Active Substance: ERGOCALCIFEROL
     Route: 065
  24. NICOTINE [Suspect]
     Active Substance: NICOTINE
     Indication: Product used for unknown indication
     Route: 065

REACTIONS (16)
  - Full blood count abnormal [Unknown]
  - Drug intolerance [Unknown]
  - Fatigue [Unknown]
  - Nicotine dependence [Unknown]
  - Obstructive airways disorder [Unknown]
  - Secondary immunodeficiency [Unknown]
  - Sputum purulent [Unknown]
  - Abdominal distension [Unknown]
  - Asthma [Unknown]
  - Wheezing [Unknown]
  - Cough [Unknown]
  - Myalgia [Unknown]
  - Abdominal pain [Unknown]
  - Constipation [Unknown]
  - Hypersensitivity [Unknown]
  - Therapeutic product effect incomplete [Unknown]
